FAERS Safety Report 12319545 (Version 1)
Quarter: 2016Q2

REPORT INFORMATION
  Report Type: Spontaneous
  Country: US (occurrence: US)
  Receive Date: 20160429
  Receipt Date: 20160429
  Transmission Date: 20160815
  Serious: No
  Sender: FDA-Public Use
  Company Number: US-ROCHE-1700598

PATIENT
  Age: 53 Year
  Sex: Female

DRUGS (5)
  1. ZOFRAN [Concomitant]
     Active Substance: ONDANSETRON HYDROCHLORIDE
  2. OXYCODONE HYDROCHLORIDE. [Concomitant]
     Active Substance: OXYCODONE HYDROCHLORIDE
  3. AVASTIN [Suspect]
     Active Substance: BEVACIZUMAB
     Indication: COLON CANCER
     Route: 065
  4. CLARITIN [Concomitant]
     Active Substance: LORATADINE
  5. CAPECITABINE. [Concomitant]
     Active Substance: CAPECITABINE

REACTIONS (8)
  - Back pain [Unknown]
  - Lacrimation increased [Unknown]
  - Rhinorrhoea [Unknown]
  - Abdominal pain [Unknown]
  - Depression [Unknown]
  - Mood swings [Unknown]
  - Nasopharyngitis [Unknown]
  - Palmar-plantar erythrodysaesthesia syndrome [Unknown]
